FAERS Safety Report 5201613-X (Version None)
Quarter: 2006Q4

REPORT INFORMATION
  Report Type: 
  Country: None (occurrence: None)
  Receive Date: 20061006
  Receipt Date: 20060322
  Transmission Date: 20070319
  Serious: Yes (Other)
  Sender: FDA-Public Use
  Company Number: 200512458BWH

PATIENT
  Age: 67 Year
  Sex: Female
  Weight: 72.5755 kg

DRUGS (3)
  1. CIPRO [Suspect]
     Indication: DIVERTICULITIS
     Dosage: 500 MG, BID, ORAL
     Route: 048
     Dates: start: 20050922
  2. CELEBREX [Concomitant]
  3. VICODIN [Concomitant]

REACTIONS (8)
  - ARTHRALGIA [None]
  - ARTHRITIS [None]
  - JOINT RANGE OF MOTION DECREASED [None]
  - MUSCLE SPASMS [None]
  - PAIN IN EXTREMITY [None]
  - TENDON DISORDER [None]
  - TENDON RUPTURE [None]
  - TENDONITIS [None]
